FAERS Safety Report 8413451-5 (Version None)
Quarter: 2012Q2

REPORT INFORMATION
  Report Type: 
  Country: None (occurrence: None)
  Receive Date: 20120605
  Receipt Date: 20120530
  Transmission Date: 20120825
  Serious: Yes (Other)
  Sender: FDA-Public Use
  Company Number: US-ROCHE-1027669

PATIENT
  Sex: Male
  Weight: 83.99 kg

DRUGS (3)
  1. ACCUTANE [Suspect]
     Route: 065
     Dates: start: 19880101, end: 19881201
  2. ACCUTANE [Suspect]
     Route: 065
     Dates: end: 19890101
  3. ACCUTANE [Suspect]
     Indication: ACNE
     Dosage: THERAPY DISCONTINUED
     Route: 065
     Dates: start: 19870101

REACTIONS (2)
  - COLITIS ULCERATIVE [None]
  - STRESS [None]
